FAERS Safety Report 25024713 (Version 2)
Quarter: 2025Q1

REPORT INFORMATION
  Report Type: Report from Study
  Country: US (occurrence: US)
  Receive Date: 20250228
  Receipt Date: 20250324
  Transmission Date: 20250409
  Serious: Yes (Hospitalization, Other)
  Sender: JOHNSON AND JOHNSON
  Company Number: US-JNJFOC-20250201083

PATIENT
  Age: 58 Year
  Sex: Female
  Weight: 84.7 kg

DRUGS (2)
  1. CILTACABTAGENE AUTOLEUCEL [Suspect]
     Active Substance: CILTACABTAGENE AUTOLEUCEL
     Indication: Plasma cell myeloma
     Route: 042
     Dates: start: 20241231, end: 20241231
  2. KEPPRA [Concomitant]
     Active Substance: LEVETIRACETAM
     Indication: Seizure prophylaxis
     Route: 048

REACTIONS (7)
  - Embolism [Recovering/Resolving]
  - Dyspnoea [Unknown]
  - Cranial nerve paralysis [Unknown]
  - Facial nerve disorder [Unknown]
  - Muscular weakness [Unknown]
  - Myopathy [Unknown]
  - Influenza [Unknown]

NARRATIVE: CASE EVENT DATE: 20250124
